FAERS Safety Report 6786302-2 (Version None)
Quarter: 2010Q2

REPORT INFORMATION
  Report Type: 
  Country: None (occurrence: None)
  Receive Date: 20100621
  Receipt Date: 20100621
  Transmission Date: 20101027
  Serious: Yes (Other)
  Sender: FDA-Public Use
  Company Number: None

PATIENT
  Age: 49 Year
  Sex: Female
  Weight: 63.5036 kg

DRUGS (1)
  1. ZITHROMAX [Suspect]
     Indication: PNEUMONIA
     Dosage: 1/DAY: 5 DAYS PO
     Route: 048
     Dates: start: 20040201, end: 20040205

REACTIONS (2)
  - FATIGUE [None]
  - MIXED CONNECTIVE TISSUE DISEASE [None]
